FAERS Safety Report 5727935-1 (Version None)
Quarter: 2008Q2

REPORT INFORMATION
  Report Type: 
  Country: None (occurrence: None)
  Receive Date: 20080505
  Receipt Date: 20080425
  Transmission Date: 20081010
  Serious: Yes (Other)
  Sender: FDA-Public Use
  Company Number: GB-PFIZER INC-2008027569

PATIENT
  Sex: Female
  Weight: 70 kg

DRUGS (3)
  1. LIPITOR [Suspect]
     Route: 048
     Dates: start: 20071130, end: 20080129
  2. LIPITOR [Suspect]
     Route: 048
     Dates: start: 20080130, end: 20080201
  3. LIPITOR [Suspect]
     Route: 048
     Dates: start: 20080201, end: 20080414

REACTIONS (4)
  - DEPRESSED MOOD [None]
  - HEADACHE [None]
  - PAIN [None]
  - SUICIDAL IDEATION [None]
